FAERS Safety Report 12441448 (Version 1)
Quarter: 2016Q2

REPORT INFORMATION
  Report Type: Spontaneous
  Country: US (occurrence: US)
  Receive Date: 20160607
  Receipt Date: 20160607
  Transmission Date: 20160815
  Serious: No
  Sender: FDA-Public Use
  Company Number: US-PFIZER INC-2016263221

PATIENT
  Age: 32 Year

DRUGS (2)
  1. ZITHROMAX [Suspect]
     Active Substance: AZITHROMYCIN DIHYDRATE
     Dosage: UNK
  2. NUVIGIL [Suspect]
     Active Substance: ARMODAFINIL
     Dosage: UNK

REACTIONS (1)
  - Drug hypersensitivity [Unknown]
